FAERS Safety Report 5207296-7 (Version None)
Quarter: 2007Q1

REPORT INFORMATION
  Report Type: 
  Country: None (occurrence: None)
  Receive Date: 20070112
  Receipt Date: 20070103
  Transmission Date: 20070707
  Serious: Yes (Hospitalization)
  Sender: FDA-Public Use
  Company Number: PHBS2007NL00455

PATIENT
  Age: 81 Year
  Sex: Female
  Weight: 52 kg

DRUGS (2)
  1. EMSELEX EXTENDED RELEASE [Suspect]
     Indication: HYPERTONIC BLADDER
     Dates: start: 20060807, end: 20061030
  2. EMSELEX EXTENDED RELEASE [Suspect]
     Dates: start: 20061031, end: 20061201

REACTIONS (2)
  - DIZZINESS [None]
  - HYPOTENSION [None]
